FAERS Safety Report 4279631-8 (Version None)
Quarter: 2004Q1

REPORT INFORMATION
  Report Type: 
  Country: None (occurrence: None)
  Receive Date: 20040123
  Receipt Date: 20040116
  Transmission Date: 20041129
  Serious: Yes (Hospitalization)
  Sender: FDA-Public Use
  Company Number: AU-JNJFOC-20031100358

PATIENT
  Sex: Male

DRUGS (1)
  1. TOPAMAX [Suspect]
     Indication: EPILEPSY
     Dosage: 2 X 15 MG CAPSULES ADMINISTERED VIA A GASTROSTOMY BUTTON
     Route: 050

REACTIONS (3)
  - ANTICONVULSANT DRUG LEVEL DECREASED [None]
  - CRYING [None]
  - PHARMACEUTICAL PRODUCT COMPLAINT [None]
